FAERS Safety Report 21793803 (Version 2)
Quarter: 2023Q1

REPORT INFORMATION
  Report Type: Report from Study
  Country: CO (occurrence: CO)
  Receive Date: 20221229
  Receipt Date: 20230122
  Transmission Date: 20230418
  Serious: Yes (Death, Hospitalization)
  Sender: FDA-Public Use
  Company Number: CO-002147023-NVSC2022CO219018

PATIENT
  Age: 60 Year
  Sex: Female
  Weight: 68 kg

DRUGS (2)
  1. KISQALI [Suspect]
     Active Substance: RIBOCICLIB
     Indication: Breast cancer metastatic
     Dosage: 600 MG, Q24H (START DATE: APPROXIMATELY 3 MONTHS AGO)
     Route: 048
  2. KISQALI [Suspect]
     Active Substance: RIBOCICLIB
     Indication: Hormone receptor positive HER2 negative breast cancer
     Dosage: UNK
     Route: 048

REACTIONS (17)
  - Death [Fatal]
  - Malaise [Unknown]
  - Arthralgia [Unknown]
  - Spinal pain [Unknown]
  - Bone marrow disorder [Recovered/Resolved]
  - Eating disorder [Recovered/Resolved]
  - Decreased immune responsiveness [Unknown]
  - Pain [Unknown]
  - Decreased appetite [Recovered/Resolved]
  - Diarrhoea [Recovered/Resolved]
  - Vomiting [Recovered/Resolved]
  - Nausea [Recovered/Resolved]
  - Asthenia [Recovered/Resolved]
  - Bone marrow disorder [Unknown]
  - Depression [Unknown]
  - Tremor [Unknown]
  - Dysstasia [Unknown]

NARRATIVE: CASE EVENT DATE: 20230108
